FAERS Safety Report 8121199-X (Version None)
Quarter: 2012Q1

REPORT INFORMATION
  Report Type: 
  Country: None (occurrence: None)
  Receive Date: 20120208
  Receipt Date: 20120201
  Transmission Date: 20120608
  Serious: Yes (Other)
  Sender: FDA-Public Use
  Company Number: AU-JNJFOC-20111208938

PATIENT
  Sex: Female
  Weight: 88 kg

DRUGS (3)
  1. LITHIUM CARBONATE [Suspect]
     Indication: PRODUCT USED FOR UNKNOWN INDICATION
     Route: 065
  2. RISPERDAL [Suspect]
     Indication: PSYCHOTIC DISORDER
     Route: 065
  3. RISPERDAL [Suspect]
     Indication: BIPOLAR DISORDER
     Route: 065

REACTIONS (5)
  - TREATMENT NONCOMPLIANCE [None]
  - DISTURBANCE IN ATTENTION [None]
  - DEPRESSION [None]
  - WEIGHT INCREASED [None]
  - AMNESIA [None]
